FAERS Safety Report 15490353 (Version 1)
Quarter: 2018Q4

REPORT INFORMATION
  Report Type: Spontaneous
  Country: US (occurrence: US)
  Receive Date: 20181011
  Receipt Date: 20181011
  Transmission Date: 20190205
  Serious: Yes (Hospitalization, Other)
  Sender: FDA-Public Use
  Company Number: PHHY2018US047259

PATIENT
  Age: 58 Year
  Sex: Male

DRUGS (6)
  1. CEFTRIAXONE. [Suspect]
     Active Substance: CEFTRIAXONE
     Indication: ARTHRITIS BACTERIAL
     Dosage: UNK
     Route: 065
  2. DEXAMETHASONE. [Concomitant]
     Active Substance: DEXAMETHASONE
     Indication: PRODUCT USED FOR UNKNOWN INDICATION
     Dosage: UNK
     Route: 065
  3. GENTAMICIN. [Concomitant]
     Active Substance: GENTAMICIN
     Indication: ARTHRITIS BACTERIAL
     Dosage: UNK (ONE PACK OF COBALT HV POLYMETHYLMETHACRYLATE CEMENT WITH 0.5 G GENTAMICIN WITH A MIXTURE OF 3.0
     Route: 065
  4. VANCOMYCIN [Concomitant]
     Active Substance: VANCOMYCIN
     Indication: ARTHRITIS BACTERIAL
     Dosage: UNK (ONE PACK OF COBALT HV POLYMETHYLMETHACRYLATE CEMENT WITH 0.5 G GENTAMICIN WITH A MIXTURE OF 3.0
     Route: 065
  5. PIPERACILINA Y TAZOBACTAM [Concomitant]
     Indication: ARTHRITIS BACTERIAL
     Dosage: UNK
     Route: 065
  6. TOBRAMYCIN. [Suspect]
     Active Substance: TOBRAMYCIN
     Indication: ARTHRITIS BACTERIAL
     Dosage: UNK (ONE PACK OF COBALT HV POLYMETHYLMETHACRYLATE CEMENT WITH 0.5 G GENTAMICIN WITH A MIXTURE OF 3.0
     Route: 065

REACTIONS (6)
  - Drug ineffective [Unknown]
  - Renal tubular necrosis [Recovering/Resolving]
  - Tubulointerstitial nephritis [Recovering/Resolving]
  - Drug level increased [Recovered/Resolved]
  - Acute kidney injury [Recovering/Resolving]
  - Nephropathy toxic [Recovering/Resolving]
